FAERS Safety Report 7269384-3 (Version None)
Quarter: 2011Q1

REPORT INFORMATION
  Report Type: 
  Country: None (occurrence: None)
  Receive Date: 20110202
  Receipt Date: 20110124
  Transmission Date: 20110831
  Serious: Yes (Death, Hospitalization)
  Sender: FDA-Public Use
  Company Number: US-BRISTOL-MYERS SQUIBB COMPANY-15507437

PATIENT
  Age: 62 Year
  Sex: Male
  Weight: 27 kg

DRUGS (8)
  1. TAXOL [Suspect]
     Indication: OESOPHAGEAL ADENOCARCINOMA
     Dates: start: 20100621, end: 20100726
  2. DIOVAN [Concomitant]
  3. CISPLATIN [Suspect]
     Indication: OESOPHAGEAL ADENOCARCINOMA
     Dates: start: 20100621, end: 20100726
  4. LIPITOR [Concomitant]
  5. ERBITUX [Suspect]
     Indication: OESOPHAGEAL ADENOCARCINOMA
     Dates: start: 20100621, end: 20100726
  6. CARVEDILOL [Concomitant]
  7. AMLODIPINE [Concomitant]
  8. OMEPRAZOLE [Concomitant]

REACTIONS (2)
  - NEOPLASM MALIGNANT [None]
  - SEPTIC SHOCK [None]
